FAERS Safety Report 19588420 (Version 1)
Quarter: 2021Q3

REPORT INFORMATION
  Report Type: Spontaneous
  Country: CA (occurrence: CA)
  Receive Date: 20210721
  Receipt Date: 20210721
  Transmission Date: 20211014
  Serious: Yes (Other)
  Sender: FDA-Public Use
  Company Number: CA-ACCORD-232432

PATIENT
  Age: 59 Year
  Sex: Female

DRUGS (2)
  1. METHOTREXATE. [Suspect]
     Active Substance: METHOTREXATE
     Indication: RHEUMATOID ARTHRITIS
  2. REMICADE [Concomitant]
     Active Substance: INFLIXIMAB
     Dosage: 1 EVERY 1 DAYS
     Route: 042

REACTIONS (2)
  - Leukopenia [Unknown]
  - Drug intolerance [Unknown]
